FAERS Safety Report 10243704 (Version 1)
Quarter: 2014Q1

REPORT INFORMATION
  Report Type: Spontaneous
  Country: US (occurrence: None)
  Receive Date: 20140306
  Receipt Date: 20140306
  Transmission Date: 20141002
  Serious: Yes (Other)
  Sender: FDA-Public Use
  Company Number: 163-21880-13114284

PATIENT
  Age: 59 Year
  Sex: Female
  Weight: 88.45 kg

DRUGS (8)
  1. REVLIMID (LENALIDOMIDE) (10 MILLIGRAM, CAPSULES) [Suspect]
     Indication: PLASMA CELL MYELOMA
     Route: 048
     Dates: start: 20120822
  2. VALTREX (VALACICLOVIR HYDROCHLIRDE) [Concomitant]
  3. ZOFRAN (ONDANSETRON HYDROHCLORIDE) [Concomitant]
  4. OXYCONTIN (OXYCODONE HYDROCHLORIDE) [Suspect]
  5. LORAZEPAM (LORAZEPAM) [Concomitant]
  6. LITHIUM [Concomitant]
  7. NOVOLOG (INSULIN ASPART) [Concomitant]
  8. LANTUS (INSULIN GLARGINE) [Concomitant]

REACTIONS (2)
  - Dehydration [None]
  - Hypokalaemia [None]
